FAERS Safety Report 4284677-X (Version None)
Quarter: 2004Q1

REPORT INFORMATION
  Report Type: 
  Country: None (occurrence: None)
  Receive Date: 20040130
  Receipt Date: 20040107
  Transmission Date: 20041129
  Serious: Yes (Death, Other)
  Sender: FDA-Public Use
  Company Number: JP_030500889

PATIENT
  Age: 52 Year
  Sex: Male
  Weight: 58 kg

DRUGS (2)
  1. GEMZAR [Suspect]
     Indication: PANCREATIC CARCINOMA
     Dosage: 1600 MG/OTHER
     Route: 050
     Dates: start: 20010703, end: 20020924
  2. GLYBURIDE [Concomitant]

REACTIONS (8)
  - ASCITES [None]
  - DISEASE PROGRESSION [None]
  - GENERAL PHYSICAL HEALTH DETERIORATION [None]
  - HAEMOGLOBIN DECREASED [None]
  - HAEMORRHAGE [None]
  - METASTASES TO SMALL INTESTINE [None]
  - RENAL FAILURE [None]
  - RENAL TUBULAR DISORDER [None]
